FAERS Safety Report 10892034 (Version 1)
Quarter: 2015Q1

REPORT INFORMATION
  Report Type: Spontaneous
  Country: IT (occurrence: GR)
  Receive Date: 20150306
  Receipt Date: 20150306
  Transmission Date: 20150721
  Serious: Yes (Death)
  Sender: FDA-Public Use
  Company Number: GR-FRI-1000068567

PATIENT
  Age: 29 Year
  Sex: Male

DRUGS (1)
  1. NEBIVOLOL [Suspect]
     Active Substance: NEBIVOLOL
     Indication: HYPERTROPHIC CARDIOMYOPATHY
     Dosage: 5 MG
     Route: 065
     Dates: start: 2010, end: 20110914

REACTIONS (2)
  - Sudden death [Fatal]
  - Dizziness [Unknown]

NARRATIVE: CASE EVENT DATE: 20110914
